FAERS Safety Report 7427718-0 (Version None)
Quarter: 2011Q2

REPORT INFORMATION
  Report Type: 
  Country: None (occurrence: None)
  Receive Date: 20110411
  Receipt Date: 20110404
  Transmission Date: 20111010
  Serious: Yes (Hospitalization)
  Sender: FDA-Public Use
  Company Number: UTC-006133

PATIENT
  Age: 60 Year
  Sex: Female
  Weight: 77.72 kg

DRUGS (1)
  1. TYVASO [Suspect]
     Indication: PULMONARY ARTERIAL HYPERTENSION
     Dosage: (54 MCG, 4 IN 1 D), INHALATION
     Route: 055
     Dates: start: 20101006

REACTIONS (2)
  - CHEST PAIN [None]
  - RESPIRATORY TRACT INFLAMMATION [None]
